FAERS Safety Report 4599611-2 (Version None)
Quarter: 2005Q1

REPORT INFORMATION
  Report Type: 
  Country: None (occurrence: None)
  Receive Date: 20050127
  Receipt Date: 20041018
  Transmission Date: 20050727
  Serious: No
  Sender: FDA-Public Use
  Company Number: USA041081572

PATIENT
  Sex: Male

DRUGS (4)
  1. STRATTERA [Suspect]
     Indication: ATTENTION DEFICIT/HYPERACTIVITY DISORDER
     Dosage: 10 MG
  2. GLUCOSAMINE [Concomitant]
  3. OMEGA 3 (FISH OIL) [Concomitant]
  4. MULTI-VITAMIN [Concomitant]

REACTIONS (2)
  - PAIN IN EXTREMITY [None]
  - PARAESTHESIA [None]
